FAERS Safety Report 12522834 (Version 1)
Quarter: 2016Q3

REPORT INFORMATION
  Report Type: Report from Study
  Country: MX (occurrence: MX)
  Receive Date: 20160701
  Receipt Date: 20160701
  Transmission Date: 20161109
  Serious: Yes (Other)
  Sender: FDA-Public Use
  Company Number: PHHY2015MX113379

PATIENT
  Age: 52 Year
  Sex: Female

DRUGS (6)
  1. EXFORGE HCT [Suspect]
     Active Substance: AMLODIPINE BESYLATE\HYDROCHLOROTHIAZIDE\VALSARTAN
     Indication: HYPERTENSION
     Dosage: 1 DF (AMLODIPINE 5 MG AND VALSARTAN 160 MG), UNK
     Route: 065
  2. SELOKEN [Concomitant]
     Active Substance: METOPROLOL
     Indication: PRODUCT USED FOR UNKNOWN INDICATION
     Dosage: 1 OT, QD
     Route: 065
  3. EXFORGE HCT [Suspect]
     Active Substance: AMLODIPINE BESYLATE\HYDROCHLOROTHIAZIDE\VALSARTAN
     Dosage: 0.5 (AMLODIPINE 10 MG AND VALSARTAN 320 MG), IN THE MORNING (SINCE 5 YEARS AGO)
     Route: 065
  4. ADALAT [Concomitant]
     Active Substance: NIFEDIPINE
     Indication: PRODUCT USED FOR UNKNOWN INDICATION
     Dosage: 1 OT, QD
     Route: 065
  5. EXFORGE HCT [Suspect]
     Active Substance: AMLODIPINE BESYLATE\HYDROCHLOROTHIAZIDE\VALSARTAN
     Dosage: 1 DF (AMLODIPINE 10 MG AND VALSARTAN 320 MG), UNK
     Route: 065
  6. LEVOTHYROXINE. [Concomitant]
     Active Substance: LEVOTHYROXINE
     Indication: BLOOD THYROID STIMULATING HORMONE DECREASED
     Route: 065

REACTIONS (13)
  - Salivary gland enlargement [Unknown]
  - Pain in extremity [Unknown]
  - Sensation of foreign body [Unknown]
  - Feeling abnormal [Unknown]
  - Inflammation [Unknown]
  - Fatigue [Unknown]
  - Lymphadenitis [Unknown]
  - Malaise [Unknown]
  - Pain [Unknown]
  - Wrong technique in product usage process [Not Recovered/Not Resolved]
  - Aptyalism [Unknown]
  - Thyroid cancer [Unknown]
  - Chills [Unknown]

NARRATIVE: CASE EVENT DATE: 201410
